FAERS Safety Report 8436156-3 (Version None)
Quarter: 2012Q2

REPORT INFORMATION
  Report Type: 
  Country: None (occurrence: None)
  Receive Date: 20120614
  Receipt Date: 20120608
  Transmission Date: 20120825
  Serious: Yes (Hospitalization)
  Sender: FDA-Public Use
  Company Number: US-PFIZER INC-2012104776

PATIENT
  Sex: Female

DRUGS (2)
  1. LIPITOR [Suspect]
     Dosage: 10 MG (1 TAB), 1X/DAY (QHS)
     Route: 048
  2. NICOTROL [Suspect]
     Dosage: 10 MG, 20 MIN PUFFING PER CARTRIDGE, MAX 16 CARTRIDGE/ DAY
     Route: 055

REACTIONS (2)
  - CLOSTRIDIAL INFECTION [None]
  - BLOOD PRESSURE FLUCTUATION [None]
